FAERS Safety Report 7592186-5 (Version None)
Quarter: 2011Q3

REPORT INFORMATION
  Report Type: 
  Country: None (occurrence: None)
  Receive Date: 20110705
  Receipt Date: 20110705
  Transmission Date: 20111222
  Serious: Yes (Hospitalization)
  Sender: FDA-Public Use
  Company Number: None

PATIENT
  Age: 52 Year
  Sex: Female
  Weight: 68 kg

DRUGS (1)
  1. GILENYA [Suspect]
     Indication: MULTIPLE SCLEROSIS
     Dosage: 0.5 MG DAILY PO
     Route: 048
     Dates: start: 20110616, end: 20110623

REACTIONS (2)
  - RESPIRATORY TRACT INFECTION [None]
  - PANCYTOPENIA [None]
